FAERS Safety Report 4941979-9 (Version None)
Quarter: 2006Q1

REPORT INFORMATION
  Report Type: 
  Country: None (occurrence: None)
  Receive Date: 20060313
  Receipt Date: 20060209
  Transmission Date: 20060701
  Serious: Yes (Hospitalization)
  Sender: FDA-Public Use
  Company Number: US-MERCK-0602USA03664

PATIENT
  Age: 50 Year
  Sex: Male
  Weight: 97 kg

DRUGS (1)
  1. VIOXX [Suspect]
     Indication: ARTHRITIS
     Route: 048
     Dates: start: 20000320, end: 20010301

REACTIONS (17)
  - ACUTE MYOCARDIAL INFARCTION [None]
  - ADVERSE EVENT [None]
  - ANAL ABSCESS [None]
  - AORTIC VALVE INCOMPETENCE [None]
  - CARDIOGENIC SHOCK [None]
  - CHEST PAIN [None]
  - HAND FRACTURE [None]
  - HEPATOMEGALY [None]
  - MASS [None]
  - MITRAL VALVE INCOMPETENCE [None]
  - PAIN IN EXTREMITY [None]
  - PERINEAL PAIN [None]
  - PLEURAL EFFUSION [None]
  - PROCTALGIA [None]
  - RECTAL ABSCESS [None]
  - SINUSITIS [None]
  - TRICUSPID VALVE INCOMPETENCE [None]
